FAERS Safety Report 7754503-2 (Version None)
Quarter: 2011Q3

REPORT INFORMATION
  Report Type: 
  Country: None (occurrence: None)
  Receive Date: 20110915
  Receipt Date: 20110912
  Transmission Date: 20111222
  Serious: Yes (Death)
  Sender: FDA-Public Use
  Company Number: JP-PFIZER INC-2011202108

PATIENT
  Age: 88 Year
  Sex: Female

DRUGS (2)
  1. ZITHROMAX [Suspect]
     Indication: PNEUMONIA
     Dosage: 2 G, SINGLE
     Route: 048
     Dates: start: 20110829, end: 20110830
  2. CEFTRIAXONE SODIUM [Concomitant]
     Indication: PNEUMONIA
     Dosage: UNK
     Route: 042
     Dates: start: 20110829

REACTIONS (3)
  - ACCIDENTAL OVERDOSE [None]
  - STOOL ANALYSIS ABNORMAL [None]
  - PNEUMONIA [None]
